FAERS Safety Report 19031226 (Version 1)
Quarter: 2021Q1

REPORT INFORMATION
  Report Type: Spontaneous
  Country: US (occurrence: US)
  Receive Date: 20210319
  Receipt Date: 20210319
  Transmission Date: 20210420
  Serious: Yes (Hospitalization)
  Sender: FDA-Public Use
  Company Number: None

PATIENT

DRUGS (1)
  1. LIPOSOMAL DOXORUBICIN [Suspect]
     Active Substance: DOXORUBICIN HYDROCHLORIDE
     Dates: end: 20210202

REACTIONS (12)
  - Erythema [None]
  - Arthralgia [None]
  - Haemoglobin decreased [None]
  - C-reactive protein increased [None]
  - Cellulitis [None]
  - Arthritis [None]
  - Pyrexia [None]
  - White blood cell count decreased [None]
  - Platelet count decreased [None]
  - Urethritis [None]
  - Neoplasm [None]
  - Fibrin D dimer increased [None]

NARRATIVE: CASE EVENT DATE: 20210217
